FAERS Safety Report 15714286 (Version 2)
Quarter: 2019Q2

REPORT INFORMATION
  Report Type: Report from Study
  Country: AU (occurrence: AU)
  Receive Date: 20181212
  Receipt Date: 20190624
  Transmission Date: 20190711
  Serious: Yes (Other)
  Sender: FDA-Public Use
  Company Number: AU-ROCHE-2229157

PATIENT
  Age: 60 Year
  Sex: Male
  Weight: 101.9 kg

DRUGS (12)
  1. DOXYCYCLINE. [Concomitant]
     Active Substance: DOXYCYCLINE
     Indication: DERMATITIS ACNEIFORM
     Route: 065
     Dates: start: 20180731
  2. AMLODIPINE [Concomitant]
     Active Substance: AMLODIPINE BESYLATE
     Indication: HYPERTENSION
     Route: 065
     Dates: end: 20180814
  3. ENDONE [Concomitant]
     Active Substance: OXYCODONE HYDROCHLORIDE
     Indication: BACK PAIN
  4. RED BLOOD CELLS [Concomitant]
     Active Substance: HUMAN RED BLOOD CELL
     Indication: PLEURAL EFFUSION
     Dosage: 2 U
     Route: 042
     Dates: start: 20181002, end: 20181002
  5. ATENOLOL. [Concomitant]
     Active Substance: ATENOLOL
     Indication: HYPERTENSION
     Route: 065
     Dates: start: 20180814
  6. COBIMETINIB. [Suspect]
     Active Substance: COBIMETINIB
     Indication: MALIGNANT MELANOMA
     Dosage: DATE OF MOST RECENT DOSE OF COBIMETINIB 60 MG PRIOR TO AE ONSET: 26/JUL/2018?DATE OF MOST RECENT DOS
     Route: 048
     Dates: start: 20180717
  7. TARGIN [Concomitant]
     Active Substance: NALOXONE HYDROCHLORIDE\OXYCODONE HYDROCHLORIDE
     Indication: BACK PAIN
  8. PREGABALIN. [Concomitant]
     Active Substance: PREGABALIN
     Indication: BACK PAIN
     Route: 065
     Dates: start: 20180703
  9. FRUSEMIDE [FUROSEMIDE] [Concomitant]
     Active Substance: FUROSEMIDE
     Indication: HYPERTENSION
     Route: 065
     Dates: start: 20180813
  10. ATEZOLIZUMAB. [Suspect]
     Active Substance: ATEZOLIZUMAB
     Indication: MALIGNANT MELANOMA
     Dosage: DATE OF MOST RECENT DOSE AT 13.20  OF ATEZOLIZUMAB 840 MG  PRIOR TO AE ONSET: 17/JUL/2018
     Route: 042
     Dates: start: 20180717
  11. HYDROCORTISONE. [Concomitant]
     Active Substance: HYDROCORTISONE
     Indication: DERMATITIS ACNEIFORM
     Route: 061
     Dates: start: 20180731
  12. RAMIPRIL. [Concomitant]
     Active Substance: RAMIPRIL
     Indication: HYPERTENSION
     Route: 065
     Dates: start: 20180814

REACTIONS (2)
  - Myocarditis [Not Recovered/Not Resolved]
  - Retinopathy [Recovered/Resolved]

NARRATIVE: CASE EVENT DATE: 20180726
